FAERS Safety Report 9409404 (Version 1)
Quarter: 2013Q3

REPORT INFORMATION
  Report Type: Spontaneous
  Country: DE (occurrence: DE)
  Receive Date: 20130719
  Receipt Date: 20130719
  Transmission Date: 20140515
  Serious: Yes (Hospitalization)
  Sender: FDA-Public Use
  Company Number: DE-009507513-1307DEU005553

PATIENT
  Age: 57 Year
  Sex: Male
  Weight: 100 kg

DRUGS (5)
  1. INTERFERON ALFA-2B [Suspect]
     Indication: CHRONIC HEPATITIS C
     Dosage: 2-2-2, 1/1 WEEK
     Route: 058
     Dates: start: 20130117
  2. RIBAVIRIN [Suspect]
     Indication: CHRONIC HEPATITIS C
     Dosage: 3-0-3
     Route: 058
     Dates: start: 20130117
  3. TELAPREVIR [Suspect]
     Indication: CHRONIC HEPATITIS C
     Dosage: 2-2-2 {375 MLIGRAM(S)}
     Route: 048
     Dates: start: 20130117, end: 20130327
  4. DOCITON [Concomitant]
     Indication: VARICES OESOPHAGEAL
     Dosage: 2-2-2
     Route: 048
     Dates: start: 201212
  5. ZYLORIC [Concomitant]
     Indication: BLOOD UREA INCREASED
     Dosage: 100 MLIGRAM9S0 EVERY DAYS, 1/1DAY
     Dates: start: 201302

REACTIONS (1)
  - Rash maculo-papular [Recovering/Resolving]
